FAERS Safety Report 7002589-5 (Version None)
Quarter: 2010Q3

REPORT INFORMATION
  Report Type: 
  Country: None (occurrence: None)
  Receive Date: 20100917
  Receipt Date: 20100917
  Transmission Date: 20110219
  Serious: No
  Sender: FDA-Public Use
  Company Number: None

PATIENT
  Sex: Female
  Weight: 58.0604 kg

DRUGS (1)
  1. LEVAQUIN [Suspect]
     Indication: SINUSITIS
     Dosage: 1 TABLET 1 PER DAY ORAL
     Route: 048
     Dates: start: 20100122, end: 20100130

REACTIONS (5)
  - ARTHRALGIA [None]
  - MUSCLE RUPTURE [None]
  - TENDON DISORDER [None]
  - TENDON PAIN [None]
  - WEIGHT BEARING DIFFICULTY [None]
